FAERS Safety Report 8859013 (Version 1)
Quarter: 2012Q4

REPORT INFORMATION
  Report Type: 
  Country: BD (occurrence: BD)
  Receive Date: 20121024
  Receipt Date: 20121024
  Transmission Date: 20130627
  Serious: Yes (Death, Hospitalization)
  Sender: FDA-Public Use
  Company Number: PHHY2012BD094640

PATIENT
  Age: 65 Year
  Sex: Male

DRUGS (1)
  1. EXELON PATCH [Suspect]
     Indication: DEMENTIA
     Dosage: 4.6 mg, daily
     Route: 062
     Dates: start: 201011, end: 201104

REACTIONS (5)
  - Dementia Alzheimer^s type [Fatal]
  - Pyrexia [Unknown]
  - Electrolyte imbalance [Unknown]
  - Blood creatinine abnormal [Unknown]
  - General physical health deterioration [Unknown]
